FAERS Safety Report 17246164 (Version 1)
Quarter: 2020Q1

REPORT INFORMATION
  Report Type: Spontaneous
  Country: US (occurrence: US)
  Receive Date: 20200108
  Receipt Date: 20200108
  Transmission Date: 20200409
  Serious: No
  Sender: FDA-Public Use
  Company Number: US-GLAXOSMITHKLINE-US2020AMR002203

PATIENT

DRUGS (4)
  1. VOLTAREN [Suspect]
     Active Substance: DICLOFENAC SODIUM
     Indication: PAIN
     Dosage: UNK
  2. VOLTAREN [Interacting]
     Active Substance: DICLOFENAC SODIUM
     Indication: SWELLING
  3. IBUPROFEN. [Interacting]
     Active Substance: IBUPROFEN
     Indication: PAIN
  4. IBUPROFEN. [Interacting]
     Active Substance: IBUPROFEN
     Indication: SWELLING
     Dosage: UNK

REACTIONS (3)
  - Drug ineffective for unapproved indication [Unknown]
  - Product use in unapproved indication [Unknown]
  - Labelled drug-drug interaction medication error [Unknown]
